FAERS Safety Report 11617755 (Version 2)
Quarter: 2015Q4

REPORT INFORMATION
  Report Type: Spontaneous
  Country: US (occurrence: US)
  Receive Date: 20151009
  Receipt Date: 20151202
  Transmission Date: 20160304
  Serious: No
  Sender: FDA-Public Use
  Company Number: GXBR2015US002133

PATIENT
  Sex: Female
  Weight: 74.83 kg

DRUGS (2)
  1. AMOXICILLIN AND CLAVULANATE POTASSIUM TABLETS USP [Suspect]
     Active Substance: AMOXICILLIN\CLAVULANATE POTASSIUM
     Indication: PNEUMONIA
     Dosage: UNK DF, UNK
     Route: 048
     Dates: end: 20150828
  2. ROBITUSSIN MULTI SYMPTOM COLD [Concomitant]
     Dosage: UNK DF, UNK

REACTIONS (1)
  - Cough [Not Recovered/Not Resolved]
